FAERS Safety Report 24835558 (Version 3)
Quarter: 2025Q1

REPORT INFORMATION
  Report Type: Spontaneous
  Country: GB (occurrence: GB)
  Receive Date: 20250113
  Receipt Date: 20250122
  Transmission Date: 20250409
  Serious: Yes (Life-Threatening, Other)
  Sender: MYLAN
  Company Number: GB-MYLANLABS-2025M1002430

PATIENT
  Sex: Male

DRUGS (1)
  1. CLOZARIL [Suspect]
     Active Substance: CLOZAPINE
     Indication: Schizophrenia
     Route: 048
     Dates: start: 20241219

REACTIONS (5)
  - Myocarditis [Unknown]
  - C-reactive protein increased [Recovering/Resolving]
  - Influenza like illness [Unknown]
  - Tachycardia [Unknown]
  - Troponin increased [Unknown]

NARRATIVE: CASE EVENT DATE: 20250111
